FAERS Safety Report 7963398-3 (Version None)
Quarter: 2011Q4

REPORT INFORMATION
  Report Type: 
  Country: None (occurrence: None)
  Receive Date: 20111205
  Receipt Date: 20110504
  Transmission Date: 20120403
  Serious: Yes (Death, Hospitalization)
  Sender: FDA-Public Use
  Company Number: TRP_07711_2011

PATIENT
  Age: 7 Year
  Sex: Male

DRUGS (2)
  1. AMPHOTERICIN B [Suspect]
     Indication: VISCERAL LEISHMANIASIS
     Dosage: SEE IMAGE
     Route: 042
  2. SODIUM STIBOGLUCONATE (20 MILLIGRAM(S)/KILOGRAM) [Suspect]
     Indication: VISCERAL LEISHMANIASIS
     Dosage: 20 MG/KG, 1 IN 1 D, INTRAMUSCULAR

REACTIONS (6)
  - VENTRICULAR TACHYCARDIA [None]
  - CARDIOTOXICITY [None]
  - CONDITION AGGRAVATED [None]
  - PANCYTOPENIA [None]
  - SHOCK [None]
  - GENERAL PHYSICAL HEALTH DETERIORATION [None]
